FAERS Safety Report 8896468 (Version 1)
Quarter: 2012Q4

REPORT INFORMATION
  Report Type: Spontaneous
  Country: AU (occurrence: None)
  Receive Date: 20121102
  Receipt Date: 20121102
  Transmission Date: 20130627
  Serious: Yes (Other)
  Sender: FDA-Public Use
  Company Number: 2012-003782

PATIENT
  Age: 67 Year
  Sex: Male

DRUGS (5)
  1. DORYX [Suspect]
     Dosage: Unknown, Oral
     Route: 048
     Dates: start: 20120301, end: 20120307
  2. AZATHIOPRINE [Suspect]
     Dosage: 25 mg once daily, Unknown
     Dates: start: 20120216, end: 20120307
  3. CHOLECALCIFEROL (COLECALCIFEROL) [Concomitant]
  4. PERINDOPRIL (PERINDOPRIL) [Concomitant]
  5. PREDNISOLONE (PREDNISOLONE) [Concomitant]

REACTIONS (1)
  - Renal failure acute [None]
